FAERS Safety Report 8268753-2 (Version None)
Quarter: 2012Q2

REPORT INFORMATION
  Report Type: 
  Country: None (occurrence: None)
  Receive Date: 20120409
  Receipt Date: 20120409
  Transmission Date: 20120825
  Serious: Yes (Life-Threatening, Hospitalization)
  Sender: FDA-Public Use
  Company Number: None

PATIENT
  Age: 48 Year
  Sex: Female
  Weight: 62.595 kg

DRUGS (3)
  1. TAMIFLU [Suspect]
     Indication: INFLUENZA
     Dosage: 2 TIMES PER DAY
     Dates: start: 20120327, end: 20120328
  2. TAMIFLU [Suspect]
     Indication: EXPOSURE TO COMMUNICABLE DISEASE
     Dosage: 2 TIMES PER DAY
     Dates: start: 20120327, end: 20120328
  3. TAMIFLU [Suspect]
     Indication: MALAISE
     Dosage: 2 TIMES PER DAY
     Dates: start: 20120327, end: 20120328

REACTIONS (4)
  - COUGH [None]
  - THROAT IRRITATION [None]
  - THROAT TIGHTNESS [None]
  - DYSPNOEA [None]
